FAERS Safety Report 6677465-8 (Version None)
Quarter: 2010Q2

REPORT INFORMATION
  Report Type: 
  Country: None (occurrence: None)
  Receive Date: 20100412
  Receipt Date: 20100408
  Transmission Date: 20101027
  Serious: Yes (Hospitalization)
  Sender: FDA-Public Use
  Company Number: A0854152A

PATIENT
  Age: 60 Year
  Sex: Female

DRUGS (24)
  1. LOVAZA [Suspect]
     Dosage: 4CAP PER DAY
     Route: 048
     Dates: start: 20091101
  2. COUMADIN [Concomitant]
  3. GLUCOPHAGE XR [Concomitant]
  4. TOPROL-XL [Concomitant]
  5. NOVOLOG [Concomitant]
  6. LANOXIN [Concomitant]
  7. DETROL [Concomitant]
  8. UNKNOWN MEDICATION [Concomitant]
  9. VITAMIN D [Concomitant]
  10. SYNTHROID [Concomitant]
  11. LASIX [Concomitant]
  12. DARVOCET [Concomitant]
  13. METANX [Concomitant]
  14. PREVACID [Concomitant]
  15. ALLEGRA [Concomitant]
  16. TRICOR [Concomitant]
  17. OSCAL [Concomitant]
  18. FLONASE [Concomitant]
  19. ASTELIN [Concomitant]
  20. BEANO [Concomitant]
  21. TYLENOL-500 [Concomitant]
  22. PONARIS [Concomitant]
  23. UNKNOWN MEDICATION [Concomitant]
  24. GAS-X [Concomitant]

REACTIONS (5)
  - ABDOMINAL DISCOMFORT [None]
  - BLOOD TRIGLYCERIDES INCREASED [None]
  - DYSGEUSIA [None]
  - ERUCTATION [None]
  - FLATULENCE [None]
